FAERS Safety Report 24357331 (Version 1)
Quarter: 2024Q3

REPORT INFORMATION
  Report Type: Spontaneous
  Country: US (occurrence: None)
  Receive Date: 20240924
  Receipt Date: 20240924
  Transmission Date: 20241017
  Serious: Yes (Life-Threatening)
  Sender: Public
  Company Number: None

PATIENT
  Age: 56 Year
  Sex: Female
  Weight: 92.3 kg

DRUGS (13)
  1. ATOMOXETINE [Suspect]
     Active Substance: ATOMOXETINE HYDROCHLORIDE
  2. ALBUTEROL [Concomitant]
     Active Substance: ALBUTEROL
  3. CELECOXIB [Concomitant]
     Active Substance: CELECOXIB
  4. CETIRIZINE [Concomitant]
     Active Substance: CETIRIZINE HYDROCHLORIDE
  5. ESTRADIOL [Concomitant]
     Active Substance: ESTRADIOL
  6. ADVAIR DISKUS [Concomitant]
     Active Substance: FLUTICASONE PROPIONATE\SALMETEROL XINAFOATE
  7. fluticasone  propionate nasal spray [Concomitant]
  8. ipratropium-albuterol nebulizer [Concomitant]
  9. METFORMIN [Concomitant]
     Active Substance: METFORMIN HYDROCHLORIDE
  10. NORETHINDRONE [Concomitant]
     Active Substance: NORETHINDRONE
  11. SEMAGLUTIDE [Concomitant]
  12. UBROGEPANT [Concomitant]
     Active Substance: UBROGEPANT
  13. Azelastine 0.137%, Ipratropium bromide monohydrate 0.003%, Oxymetazoli [Concomitant]

REACTIONS (4)
  - Cough [None]
  - Upper respiratory tract congestion [None]
  - Asthma [None]
  - Therapy cessation [None]

NARRATIVE: CASE EVENT DATE: 20240801
